FAERS Safety Report 5596748-6 (Version None)
Quarter: 2007Q4

REPORT INFORMATION
  Report Type: 
  Country: None (occurrence: None)
  Receive Date: 20071220
  Receipt Date: 20071030
  Transmission Date: 20080405
  Serious: Yes (Hospitalization)
  Sender: FDA-Public Use
  Company Number: US-JNJFOC-20071008167

PATIENT
  Age: 28 Year
  Sex: Female

DRUGS (1)
  1. NORGESTIMATE AND ETHINYL ESTRADIOL [Suspect]
     Indication: DRUG USE FOR UNKNOWN INDICATION
     Dosage: ORAL
     Route: 048
     Dates: start: 20070328, end: 20070418

REACTIONS (4)
  - ANXIETY [None]
  - HYPOAESTHESIA [None]
  - PAIN IN EXTREMITY [None]
  - PULMONARY EMBOLISM [None]
